FAERS Safety Report 13891077 (Version 1)
Quarter: 2017Q3

REPORT INFORMATION
  Report Type: Report from Study
  Country: BR (occurrence: BR)
  Receive Date: 20170822
  Receipt Date: 20170822
  Transmission Date: 20171127
  Serious: Yes (Death, Life-Threatening, Hospitalization, Other)
  Sender: FDA-Public Use
  Company Number: PHHY2017BR123268

PATIENT
  Sex: Female

DRUGS (1)
  1. ACLASTA [Suspect]
     Active Substance: ZOLEDRONIC ACID
     Indication: PRODUCT USED FOR UNKNOWN INDICATION
     Dosage: 1 DF, Q12MO
     Route: 042

REACTIONS (8)
  - Renal failure [Fatal]
  - Cardiac failure [Fatal]
  - Dementia Alzheimer^s type [Unknown]
  - Multiple organ dysfunction syndrome [Fatal]
  - Fall [Unknown]
  - Drug ineffective [Unknown]
  - Apparent death [Unknown]
  - Fracture [Unknown]
